FAERS Safety Report 24398061 (Version 1)
Quarter: 2024Q4

REPORT INFORMATION
  Report Type: Other
  Country: IT (occurrence: IT)
  Receive Date: 20241004
  Receipt Date: 20241004
  Transmission Date: 20250115
  Serious: Yes (Other)
  Sender: FENNEC PHARMACEUTICALS
  Company Number: IT-FENNEC PHARMACEUTICALS, INC.-2024FEN00044

PATIENT
  Age: 79 Year
  Sex: Male

DRUGS (1)
  1. SODIUM THIOSULFATE [Suspect]
     Active Substance: SODIUM THIOSULFATE
     Indication: Calciphylaxis
     Dosage: 12.5 G, 3X/WEEK (CAN BE INCREASED UP TO 25 G)
     Route: 042
     Dates: start: 202403, end: 2024

REACTIONS (2)
  - ECG signs of myocardial ischaemia [Unknown]
  - Off label use [Recovered/Resolved]

NARRATIVE: CASE EVENT DATE: 20240101
